FAERS Safety Report 13957559 (Version 2)
Quarter: 2017Q4

REPORT INFORMATION
  Report Type: Report from Study
  Country: US (occurrence: US)
  Receive Date: 20170911
  Receipt Date: 20171012
  Transmission Date: 20180320
  Serious: Yes (Hospitalization, Other)
  Sender: FDA-Public Use
  Company Number: US-BAYER-2017-144941

PATIENT
  Age: 68 Year
  Sex: Male

DRUGS (3)
  1. STIVARGA [Suspect]
     Active Substance: REGORAFENIB
     Indication: HAEMATOPOIETIC NEOPLASM
     Dosage: 160 MG DAILY
     Route: 048
     Dates: start: 20170706, end: 2017
  2. STIVARGA [Suspect]
     Active Substance: REGORAFENIB
     Indication: HAEMATOPOIETIC NEOPLASM
     Dosage: 160 MG DAILY
     Dates: start: 20170814, end: 2017
  3. STIVARGA [Suspect]
     Active Substance: REGORAFENIB
     Indication: HAEMATOPOIETIC NEOPLASM
     Dosage: 160 MG DAILY
     Dates: start: 20170612, end: 2017

REACTIONS (13)
  - Decreased appetite [None]
  - Fatigue [None]
  - Decreased appetite [None]
  - Joint stiffness [None]
  - Dehydration [None]
  - Exostosis [None]
  - Arthralgia [None]
  - Off label use [None]
  - Hypophagia [None]
  - Acute prerenal failure [None]
  - Decreased appetite [None]
  - Product use in unapproved indication [None]
  - Stomatitis [None]

NARRATIVE: CASE EVENT DATE: 2017
